FAERS Safety Report 7426419-2 (Version None)
Quarter: 2011Q2

REPORT INFORMATION
  Report Type: 
  Country: None (occurrence: None)
  Receive Date: 20110420
  Receipt Date: 20110420
  Transmission Date: 20111010
  Serious: Yes (Other)
  Sender: FDA-Public Use
  Company Number: US-PFIZER INC-2011082760

PATIENT
  Sex: Female

DRUGS (3)
  1. ALDACTONE [Suspect]
     Indication: ALOPECIA
     Dosage: 100 MG, DAILY
     Route: 048
     Dates: start: 20060101
  2. ALDACTONE [Suspect]
     Dosage: 150 MG, 1X/DAY
  3. PREDNISONE [Suspect]
     Indication: RASH
     Dosage: UNK

REACTIONS (1)
  - DIABETES MELLITUS [None]
